FAERS Safety Report 7364576-7 (Version None)
Quarter: 2011Q1

REPORT INFORMATION
  Report Type: 
  Country: None (occurrence: None)
  Receive Date: 20110321
  Receipt Date: 20110309
  Transmission Date: 20110831
  Serious: Yes (Death, Life-Threatening, Hospitalization, Other)
  Sender: FDA-Public Use
  Company Number: JP-CELGENEUS-087-21880-11010466

PATIENT
  Sex: Female
  Weight: 38.4 kg

DRUGS (18)
  1. BIO-THREE [Concomitant]
     Indication: MULTIPLE MYELOMA
     Route: 048
     Dates: start: 20101212, end: 20101223
  2. REVLIMID [Suspect]
     Dosage: 15 MILLIGRAM
     Route: 048
     Dates: start: 20101231, end: 20110102
  3. SLOW-K [Concomitant]
     Indication: MULTIPLE MYELOMA
     Dosage: 600 MILLIGRAM
     Route: 048
     Dates: start: 20101220, end: 20101223
  4. LOPEMIN [Concomitant]
     Indication: MULTIPLE MYELOMA
     Dosage: 1 MILLIGRAM
     Route: 048
     Dates: start: 20101221, end: 20110102
  5. SOLU-CORTEF [Concomitant]
     Indication: MULTIPLE MYELOMA
     Dosage: 100 MILLIGRAM
     Route: 041
     Dates: start: 20110103, end: 20110104
  6. BAKTAR [Concomitant]
     Indication: PROPHYLAXIS
     Dosage: 4 TABLET
     Route: 048
     Dates: start: 20100125, end: 20110102
  7. GABAPEN [Concomitant]
     Indication: MULTIPLE MYELOMA
     Dosage: 400 MILLIGRAM
     Route: 048
     Dates: start: 20100419, end: 20110102
  8. ALBUMIN TANNATE [Concomitant]
     Indication: MULTIPLE MYELOMA
     Dosage: 3 GRAM
     Route: 048
     Dates: start: 20101217, end: 20110102
  9. GRAN [Concomitant]
     Indication: MULTIPLE MYELOMA
     Dosage: 75 MICROGRAM
     Route: 051
     Dates: start: 20101227, end: 20101227
  10. REVLIMID [Suspect]
     Indication: MULTIPLE MYELOMA
     Dosage: 15 MILLIGRAM
     Route: 048
     Dates: start: 20101203, end: 20101205
  11. REVLIMID [Suspect]
     Dosage: 5 MILLIGRAM
     Route: 048
     Dates: start: 20101215, end: 20101223
  12. REVLIMID [Suspect]
     Dosage: 10 MILLIGRAM
     Route: 048
     Dates: start: 20101225, end: 20101229
  13. LENADEX [Suspect]
     Dosage: 40 MILLIGRAM
     Route: 048
     Dates: start: 20101215, end: 20101229
  14. LENADEX [Suspect]
     Indication: MULTIPLE MYELOMA
     Dosage: 40 MILLIGRAM
     Route: 048
     Dates: start: 20101203, end: 20101203
  15. ASPIRIN [Concomitant]
     Indication: PROPHYLAXIS
     Dosage: 100 MILLIGRAM
     Route: 048
     Dates: start: 20101203, end: 20101209
  16. TAKEPRON [Concomitant]
     Indication: PROPHYLAXIS
     Dosage: 15 MILLIGRAM
     Route: 048
     Dates: start: 20100222, end: 20110102
  17. ITRIZOLE [Concomitant]
     Indication: PROPHYLAXIS
     Dosage: 20 MILLILITER
     Route: 048
     Dates: start: 20100125, end: 20110102
  18. ZOMETA [Concomitant]
     Indication: MULTIPLE MYELOMA
     Dosage: 4 MILLIGRAM
     Route: 041
     Dates: start: 20101206, end: 20101206

REACTIONS (11)
  - GAIT DISTURBANCE [None]
  - SEPSIS [None]
  - CHOKING SENSATION [None]
  - DIARRHOEA [None]
  - HAEMATEMESIS [None]
  - BLOOD CREATININE INCREASED [None]
  - PLATELET COUNT DECREASED [None]
  - HYPOPHAGIA [None]
  - NEUTROPENIA [None]
  - NAUSEA [None]
  - VOMITING [None]
